FAERS Safety Report 8609569-4 (Version None)
Quarter: 2012Q3

REPORT INFORMATION
  Report Type: 
  Country: None (occurrence: None)
  Receive Date: 20120423
  Receipt Date: 20081205
  Transmission Date: 20120928
  Serious: Yes (Other)
  Sender: FDA-Public Use
  Company Number: PHEH2008US11008

PATIENT
  Age: 61 Year
  Sex: Female

DRUGS (1)
  1. FEMARA [Suspect]
     Dosage: 2.5, UNK, DAILY,ORAL
     Route: 048
     Dates: start: 20070201

REACTIONS (4)
  - ALOPECIA [None]
  - ANGINA PECTORIS [None]
  - ARTHRALGIA [None]
  - PHOTOSENSITIVITY REACTION [None]
